FAERS Safety Report 9467535 (Version 1)
Quarter: 2013Q3

REPORT INFORMATION
  Report Type: Spontaneous
  Country: US (occurrence: None)
  Receive Date: 20130819
  Receipt Date: 20130819
  Transmission Date: 20140515
  Serious: No
  Sender: FDA-Public Use
  Company Number: None

PATIENT
  Age: 67 Year
  Sex: Male

DRUGS (2)
  1. TEGRETOL [Suspect]
     Indication: EPILEPSY
     Dates: start: 199904, end: 199906
  2. DEPAKOTE [Suspect]
     Indication: EPILEPSY
     Dates: start: 199906

REACTIONS (7)
  - Rash [None]
  - Dry skin [None]
  - Dysarthria [None]
  - Motor dysfunction [None]
  - Coordination abnormal [None]
  - Gait disturbance [None]
  - Somnolence [None]
